FAERS Safety Report 10239626 (Version 2)
Quarter: 2014Q3

REPORT INFORMATION
  Report Type: Report from Study
  Country: JP (occurrence: JP)
  Receive Date: 20140616
  Receipt Date: 20140909
  Transmission Date: 20150326
  Serious: Yes (Hospitalization)
  Sender: FDA-Public Use
  Company Number: JP-EISAI INC-E2080-00734-SOL-JP

PATIENT
  Age: 22 Year
  Sex: Male
  Weight: 36.6 kg

DRUGS (11)
  1. PURIMIDON, DERIVATIVES AND PREPARATIONS [Concomitant]
  2. INOVELON [Suspect]
     Active Substance: RUFINAMIDE
     Indication: LENNOX-GASTAUT SYNDROME
     Route: 048
     Dates: start: 20130705, end: 2013
  3. INOVELON [Suspect]
     Active Substance: RUFINAMIDE
     Route: 048
     Dates: start: 20140218, end: 20140410
  4. MAGNESIUM OXIDE. [Concomitant]
     Active Substance: MAGNESIUM OXIDE
  5. INOVELON [Suspect]
     Active Substance: RUFINAMIDE
     Route: 048
     Dates: start: 2013, end: 2013
  6. INOVELON [Suspect]
     Active Substance: RUFINAMIDE
     Route: 048
     Dates: start: 20130816, end: 2013
  7. INOVELON [Suspect]
     Active Substance: RUFINAMIDE
     Route: 048
     Dates: start: 2013, end: 20130815
  8. INOVELON [Suspect]
     Active Substance: RUFINAMIDE
     Route: 048
     Dates: start: 2013, end: 20140217
  9. DEPAKENE [Concomitant]
     Active Substance: VALPROIC ACID
  10. L-CARTIN [Concomitant]
     Active Substance: LEVOCARNITINE HYDROCHLORIDE
  11. INOVELON [Suspect]
     Active Substance: RUFINAMIDE
     Route: 048
     Dates: start: 20140411, end: 20140422

REACTIONS (4)
  - Protein-losing gastroenteropathy [Recovering/Resolving]
  - Anaemia [Recovering/Resolving]
  - Hypoalbuminaemia [Recovered/Resolved]
  - Somnolence [Unknown]

NARRATIVE: CASE EVENT DATE: 20130816
